FAERS Safety Report 25720668 (Version 1)
Quarter: 2025Q3

REPORT INFORMATION
  Report Type: Spontaneous
  Country: EU (occurrence: EU)
  Receive Date: 20250825
  Receipt Date: 20250825
  Transmission Date: 20251020
  Serious: Yes (Life-Threatening, Hospitalization)
  Sender: ORGANON
  Company Number: None

PATIENT
  Age: 24 Year
  Sex: Female
  Weight: 54 kg

DRUGS (1)
  1. NUVARING [Suspect]
     Active Substance: ETHINYL ESTRADIOL\ETONOGESTREL
     Indication: Hormonal contraception
     Route: 067
     Dates: start: 2023, end: 20250801

REACTIONS (3)
  - Pulmonary embolism [Recovering/Resolving]
  - Pulmonary hypertension [Recovering/Resolving]
  - Right ventricular dilatation [Recovering/Resolving]

NARRATIVE: CASE EVENT DATE: 20250101
